FAERS Safety Report 7082867-4 (Version None)
Quarter: 2010Q4

REPORT INFORMATION
  Report Type: 
  Country: None (occurrence: None)
  Receive Date: 20101104
  Receipt Date: 20101020
  Transmission Date: 20110411
  Serious: Yes (Other)
  Sender: FDA-Public Use
  Company Number: PHHY2010US40265

PATIENT
  Sex: Female
  Weight: 48 kg

DRUGS (5)
  1. RECLAST [Suspect]
     Indication: OSTEOPOROSIS
     Dosage: UNK, ONCE A WEEK
     Route: 042
     Dates: start: 20090101
  2. FOSAMAX [Suspect]
     Dosage: 70 MG, QW
  3. VICODIN [Concomitant]
  4. CALCIUM [Concomitant]
  5. VITAMIN D [Concomitant]

REACTIONS (18)
  - ARTHRALGIA [None]
  - BONE PAIN [None]
  - CONDITION AGGRAVATED [None]
  - DECREASED APPETITE [None]
  - DISTURBANCE IN ATTENTION [None]
  - DRUG HYPERSENSITIVITY [None]
  - FATIGUE [None]
  - FEELING ABNORMAL [None]
  - FRUSTRATION [None]
  - KYPHOSIS [None]
  - MUSCULOSKELETAL PAIN [None]
  - PAIN [None]
  - RASH ERYTHEMATOUS [None]
  - RETCHING [None]
  - SCAB [None]
  - STRESS [None]
  - VOMITING [None]
  - WEIGHT DECREASED [None]
